FAERS Safety Report 7222148-9 (Version None)
Quarter: 2011Q1

REPORT INFORMATION
  Report Type: 
  Country: None (occurrence: None)
  Receive Date: 20110103
  Receipt Date: 20101217
  Transmission Date: 20110831
  Serious: Yes (Other)
  Sender: FDA-Public Use
  Company Number: 012273

PATIENT
  Age: 89 Year
  Sex: Male

DRUGS (2)
  1. DEMECLOCYCLINE HCL [Suspect]
     Dates: end: 20101201
  2. SAMSCA [Suspect]
     Indication: INAPPROPRIATE ANTIDIURETIC HORMONE SECRETION

REACTIONS (3)
  - DRUG INEFFECTIVE [None]
  - RENAL FAILURE [None]
  - DEHYDRATION [None]
